FAERS Safety Report 16146168 (Version 5)
Quarter: 2020Q2

REPORT INFORMATION
  Report Type: Report from Study
  Country: US (occurrence: US)
  Receive Date: 20190402
  Receipt Date: 20200623
  Transmission Date: 20200713
  Serious: Yes (Hospitalization, Other)
  Sender: FDA-Public Use
  Company Number: US-ROCHE-2193176

PATIENT
  Age: 63 Year
  Sex: Female
  Weight: 92.16 kg

DRUGS (32)
  1. OCREVUS [Suspect]
     Active Substance: OCRELIZUMAB
     Indication: MULTIPLE SCLEROSIS
     Dosage: INFUSE 600 MG EVERY 6 MONTHS
     Route: 065
  2. ESOMEPRAZOLE. [Concomitant]
     Active Substance: ESOMEPRAZOLE MAGNESIUM
     Indication: GASTROOESOPHAGEAL REFLUX DISEASE
     Dosage: ONGOING YES
     Route: 048
     Dates: start: 2000
  3. SOLU-MEDROL [Suspect]
     Active Substance: METHYLPREDNISOLONE SODIUM SUCCINATE
     Indication: PRODUCT USED FOR UNKNOWN INDICATION
     Route: 065
  4. SODIUM BICARBONATE. [Concomitant]
     Active Substance: SODIUM BICARBONATE
  5. ESOMEPRAZOLE. [Concomitant]
     Active Substance: ESOMEPRAZOLE MAGNESIUM
  6. BACLOFEN. [Concomitant]
     Active Substance: BACLOFEN
  7. DULOXETINE. [Concomitant]
     Active Substance: DULOXETINE
  8. SPIRONOLACTON [Suspect]
     Active Substance: SPIRONOLACTONE
     Indication: HYPERTENSION
     Route: 048
     Dates: start: 2010, end: 201904
  9. AMLODIPINE BESYLATE. [Concomitant]
     Active Substance: AMLODIPINE BESYLATE
  10. ALBUTEROL [SALBUTAMOL] [Concomitant]
     Active Substance: ALBUTEROL
  11. SPIRIVA RESPIMAT [Concomitant]
     Active Substance: TIOTROPIUM BROMIDE
     Indication: DYSPNOEA
     Dosage: 2 PUFFS; ONGOING YES
     Route: 055
     Dates: start: 20200605
  12. LEXAPRO [Concomitant]
     Active Substance: ESCITALOPRAM OXALATE
     Indication: PAIN
     Dosage: ONGOING NO
     Route: 048
     Dates: start: 2001
  13. LASIX [Concomitant]
     Active Substance: FUROSEMIDE
     Indication: JOINT SWELLING
     Dosage: ONGOING YES
     Route: 048
     Dates: start: 2019
  14. GABAPENTIN. [Concomitant]
     Active Substance: GABAPENTIN
  15. ACIDOPHILUS PROBIOTIC [Concomitant]
     Active Substance: LACTOBACILLUS ACIDOPHILUS
  16. IPRATROPIUM BROMIDE. [Concomitant]
     Active Substance: IPRATROPIUM BROMIDE
  17. PROAIR HFA [Concomitant]
     Active Substance: ALBUTEROL SULFATE
     Indication: DYSPNOEA
     Dosage: RESCUE INHALER; ONGOING YES
     Route: 065
     Dates: start: 2010
  18. MONTELUCAST [Concomitant]
     Active Substance: MONTELUKAST SODIUM
  19. TEMAZEPAM. [Concomitant]
     Active Substance: TEMAZEPAM
  20. VITAMIN D3 [Concomitant]
     Active Substance: CHOLECALCIFEROL
  21. BABY ASPIRIN [Concomitant]
     Active Substance: ASPIRIN
     Route: 065
     Dates: start: 2012
  22. CYMBALTA [Concomitant]
     Active Substance: DULOXETINE HYDROCHLORIDE
  23. LISINOPRIL. [Concomitant]
     Active Substance: LISINOPRIL
  24. FUROSEMIDE. [Concomitant]
     Active Substance: FUROSEMIDE
  25. METFORMIN [Concomitant]
     Active Substance: METFORMIN HYDROCHLORIDE
     Route: 065
  26. ATORVASTATIN [Concomitant]
     Active Substance: ATORVASTATIN
  27. DICYCLOMINE [Concomitant]
     Active Substance: DICYCLOMINE HYDROCHLORIDE
  28. LEXAPRO [Concomitant]
     Active Substance: ESCITALOPRAM OXALATE
     Indication: DEPRESSION
  29. OCREVUS [Suspect]
     Active Substance: OCRELIZUMAB
     Indication: RELAPSING MULTIPLE SCLEROSIS
     Dosage: 2ND HALF DOSE 12/OCT/2018
     Route: 065
  30. FERROUS SULFATE. [Concomitant]
     Active Substance: FERROUS SULFATE
     Indication: IRON DEFICIENCY
     Dosage: ONGOING YES
     Route: 048
     Dates: start: 202006
  31. OCREVUS [Suspect]
     Active Substance: OCRELIZUMAB
     Indication: RELAPSING-REMITTING MULTIPLE SCLEROSIS
     Route: 042
     Dates: start: 20180928
  32. MOMETASONE [Concomitant]
     Active Substance: MOMETASONE

REACTIONS (43)
  - Pruritus [Recovered/Resolved]
  - Oesophageal pain [Recovered/Resolved]
  - Oropharyngeal pain [Not Recovered/Not Resolved]
  - Chronic kidney disease [Recovered/Resolved]
  - Dry skin [Not Recovered/Not Resolved]
  - Hypersensitivity [Not Recovered/Not Resolved]
  - Amnesia [Not Recovered/Not Resolved]
  - Irritable bowel syndrome [Not Recovered/Not Resolved]
  - Cough [Recovered/Resolved]
  - Burning sensation [Recovered/Resolved]
  - Pulmonary mass [Not Recovered/Not Resolved]
  - Fatigue [Unknown]
  - Human metapneumovirus test positive [Recovered/Resolved]
  - Musculoskeletal stiffness [Not Recovered/Not Resolved]
  - Movement disorder [Not Recovered/Not Resolved]
  - Flushing [Recovered/Resolved]
  - Upper respiratory tract infection [Recovered/Resolved]
  - Swelling [Not Recovered/Not Resolved]
  - Blood creatinine increased [Recovered/Resolved]
  - Influenza [Recovered/Resolved]
  - Heart rate increased [Recovered/Resolved]
  - Sinusitis [Recovered/Resolved]
  - Oxygen saturation decreased [Unknown]
  - Diverticulum [Unknown]
  - Chest discomfort [Unknown]
  - Haemoglobin decreased [Not Recovered/Not Resolved]
  - Dyspnoea [Recovered/Resolved]
  - Immunodeficiency [Recovered/Resolved]
  - Anxiety [Unknown]
  - Pain [Not Recovered/Not Resolved]
  - Dyspnoea [Unknown]
  - Asthma [Unknown]
  - Pyrexia [Recovering/Resolving]
  - Gait disturbance [Not Recovered/Not Resolved]
  - Pain [Recovered/Resolved]
  - Pneumonia [Not Recovered/Not Resolved]
  - Pyrexia [Unknown]
  - Inflammation [Recovered/Resolved]
  - Chest discomfort [Recovered/Resolved]
  - Herpes zoster [Recovered/Resolved]
  - Thinking abnormal [Not Recovered/Not Resolved]
  - Iron deficiency [Unknown]
  - Dyspnoea [Not Recovered/Not Resolved]

NARRATIVE: CASE EVENT DATE: 2018
